FAERS Safety Report 23516384 (Version 1)
Quarter: 2024Q1

REPORT INFORMATION
  Report Type: Spontaneous
  Country: ES (occurrence: ES)
  Receive Date: 20240213
  Receipt Date: 20240213
  Transmission Date: 20240410
  Serious: Yes (Hospitalization, Other)
  Sender: FDA-Public Use
  Company Number: None

PATIENT
  Age: 60 Year
  Sex: Female

DRUGS (5)
  1. LINEZOLID [Interacting]
     Active Substance: LINEZOLID
     Indication: Endocarditis staphylococcal
     Dosage: 600 MILLIGRAM, BID (EVERY 12 HOUR)
     Route: 065
  2. LINEZOLID [Interacting]
     Active Substance: LINEZOLID
     Dosage: 1200 MILLIGRAM, QD (Q24H) (CONTINUOUS INFUSION)
     Route: 065
  3. LINEZOLID [Interacting]
     Active Substance: LINEZOLID
     Dosage: 1800 MILLIGRAM, QD (Q24H)
     Route: 065
  4. RIFAMPIN [Interacting]
     Active Substance: RIFAMPIN
     Indication: Endocarditis staphylococcal
     Dosage: 600 MILLIGRAM, QD (EVERY 24 HOUR)
     Route: 065
  5. CLOXACILLIN [Concomitant]
     Active Substance: CLOXACILLIN
     Indication: Endocarditis staphylococcal
     Dosage: 2000 MILLIGRAM (EVERY 4 HOUR)
     Route: 065

REACTIONS (2)
  - Drug level below therapeutic [Recovered/Resolved]
  - Drug interaction [Unknown]

NARRATIVE: CASE EVENT DATE: 20210401
